FAERS Safety Report 5841535-4 (Version None)
Quarter: 2008Q3

REPORT INFORMATION
  Report Type: 
  Country: None (occurrence: None)
  Receive Date: 20080812
  Receipt Date: 20080808
  Transmission Date: 20090109
  Serious: No
  Sender: FDA-Public Use
  Company Number: DE-BRISTOL-MYERS SQUIBB COMPANY-14285464

PATIENT
  Age: 56 Year
  Sex: Female
  Weight: 80 kg

DRUGS (4)
  1. AMPHO-MORONAL LOZENGE 10 MG [Suspect]
     Indication: RASH PAPULAR
     Dosage: 4X1 TABLET PER DAY(40 MG/D IN TOTAL)
     Route: 048
     Dates: start: 20080626
  2. BISOPROLOL FUMARATE [Concomitant]
  3. LEVONORGESTREL + ETHINYL ESTRADIOL [Concomitant]
     Indication: CONTRACEPTION
  4. LEVOTHYROXINE SODIUM [Concomitant]

REACTIONS (1)
  - TONGUE OEDEMA [None]
